FAERS Safety Report 19084848 (Version 1)
Quarter: 2021Q2

REPORT INFORMATION
  Report Type: Report from Study
  Country: US (occurrence: US)
  Receive Date: 20210401
  Receipt Date: 20210401
  Transmission Date: 20210717
  Serious: Yes (Life-Threatening, Hospitalization, Other)
  Sender: FDA-Public Use
  Company Number: NVSC2021US065097

PATIENT
  Age: 2 Year
  Sex: Female
  Weight: 11.02 kg

DRUGS (4)
  1. CYCLOPHOSPHAMIDE. [Suspect]
     Active Substance: CYCLOPHOSPHAMIDE
     Indication: RHABDOID TUMOUR
     Dosage: 128 MG, QD (DAYS 1?5 OF 21 DAY CYCLE)
     Route: 042
     Dates: start: 20210223
  2. PALBOCICLIB [Suspect]
     Active Substance: PALBOCICLIB
     Indication: RHABDOID TUMOUR
     Dosage: 40 MG, QD (1?14 OF 21 DAY CYCLE)
     Route: 048
     Dates: start: 20210223, end: 20210304
  3. TOPOTECAN HYDROCHLORIDE. [Suspect]
     Active Substance: TOPOTECAN HYDROCHLORIDE
     Indication: RHABDOID TUMOUR
     Dosage: 0.38 MG, QD (DAYS 1?5 OF 21 DAY CYCLE)
     Route: 042
     Dates: start: 20210223
  4. BACTRIM [Concomitant]
     Active Substance: SULFAMETHOXAZOLE\TRIMETHOPRIM
     Indication: ANTIFUNGAL PROPHYLAXIS
     Dosage: UNK
     Route: 065
     Dates: start: 20210202

REACTIONS (13)
  - Platelet count decreased [Not Recovered/Not Resolved]
  - Tachycardia [Not Recovered/Not Resolved]
  - Vomiting [Not Recovered/Not Resolved]
  - Rhabdoid tumour [Not Recovered/Not Resolved]
  - Product use in unapproved indication [Unknown]
  - Neutrophil count decreased [Not Recovered/Not Resolved]
  - Cough [Not Recovered/Not Resolved]
  - Nausea [Not Recovered/Not Resolved]
  - Haemoglobin decreased [Not Recovered/Not Resolved]
  - Febrile neutropenia [Not Recovered/Not Resolved]
  - Body temperature increased [Not Recovered/Not Resolved]
  - Rhinorrhoea [Not Recovered/Not Resolved]
  - Hypophagia [Not Recovered/Not Resolved]

NARRATIVE: CASE EVENT DATE: 20210304
